FAERS Safety Report 7763001-1 (Version None)
Quarter: 2011Q3

REPORT INFORMATION
  Report Type: 
  Country: None (occurrence: None)
  Receive Date: 20110920
  Receipt Date: 20110919
  Transmission Date: 20111222
  Serious: Yes (Other)
  Sender: FDA-Public Use
  Company Number: US-PFIZER INC-2011222626

PATIENT
  Sex: Female

DRUGS (2)
  1. CHANTIX [Suspect]
     Dosage: UNK
     Dates: start: 20110101
  2. CIPROFLOXACIN HYDROCHLORIDE [Suspect]
     Dosage: UNK

REACTIONS (4)
  - RASH [None]
  - ABNORMAL DREAMS [None]
  - NAUSEA [None]
  - IRRITABILITY [None]
